FAERS Safety Report 6071754-6 (Version None)
Quarter: 2009Q1

REPORT INFORMATION
  Report Type: 
  Country: None (occurrence: None)
  Receive Date: 20090209
  Receipt Date: 20090209
  Transmission Date: 20090719
  Serious: Yes (Death)
  Sender: FDA-Public Use
  Company Number: None

PATIENT
  Age: 61 Year
  Sex: Female
  Weight: 80 kg

DRUGS (1)
  1. THALOMID [Suspect]
     Indication: LYMPHOMA
     Dosage: 100 MG DAILY ORAL
     Route: 048
     Dates: start: 20081205, end: 20081211

REACTIONS (4)
  - HYPERSENSITIVITY [None]
  - PNEUMONIA [None]
  - THERMAL BURN [None]
  - TOXIC EPIDERMAL NECROLYSIS [None]
